FAERS Safety Report 10402380 (Version 1)
Quarter: 2014Q3

REPORT INFORMATION
  Report Type: Spontaneous
  Country: US (occurrence: None)
  Receive Date: 20140820
  Receipt Date: 20140820
  Transmission Date: 20150326
  Serious: Yes (Other)
  Sender: FDA-Public Use
  Company Number: None

PATIENT
  Age: 45 Year
  Sex: Male
  Weight: 65.32 kg

DRUGS (1)
  1. BACLOFEN. [Suspect]
     Active Substance: BACLOFEN
     Route: 048
     Dates: start: 20140513, end: 20140514

REACTIONS (4)
  - Encephalopathy [None]
  - Somnolence [None]
  - Wrong drug administered [None]
  - Dystonia [None]

NARRATIVE: CASE EVENT DATE: 20140514
